FAERS Safety Report 15214521 (Version 1)
Quarter: 2018Q3

REPORT INFORMATION
  Report Type: Spontaneous
  Country: CA (occurrence: CA)
  Receive Date: 20180730
  Receipt Date: 20180730
  Transmission Date: 20181010
  Serious: Yes (Death)
  Sender: FDA-Public Use
  Company Number: CA-SA-2018SA205063

PATIENT
  Age: 69 Year
  Sex: Male

DRUGS (1)
  1. SEVELAMER SALT NOT SPECIFIED [Suspect]
     Active Substance: SEVELAMER
     Dosage: UNK UNK, UNK
     Route: 048

REACTIONS (10)
  - Cardiac arrest [Fatal]
  - Bradycardia [Fatal]
  - Atelectasis [Unknown]
  - Pleural effusion [Unknown]
  - Pyrexia [Unknown]
  - Hypotension [Unknown]
  - Colitis ischaemic [Unknown]
  - Obstructive airways disorder [Fatal]
  - Abdominal pain [Unknown]
  - Product deposit [Unknown]
